FAERS Safety Report 7052663-2 (Version None)
Quarter: 2010Q4

REPORT INFORMATION
  Report Type: 
  Country: None (occurrence: None)
  Receive Date: 20101014
  Receipt Date: 20100923
  Transmission Date: 20110411
  Serious: Yes (Other)
  Sender: FDA-Public Use
  Company Number: JPI-P-012350

PATIENT
  Age: 59 Year
  Sex: Female
  Weight: 70.3075 kg

DRUGS (9)
  1. XYREM [Suspect]
     Indication: FIBROMYALGIA
     Dosage: 4.5 GM (2.25 GM, 2 IN 1 D), ORAL
     Route: 048
     Dates: start: 20081126, end: 20090121
  2. XYREM [Suspect]
     Indication: FIBROMYALGIA
     Dosage: 4.5 GM (2.25 GM, 2 IN 1 D), ORAL
     Route: 048
     Dates: start: 20090122, end: 20100904
  3. XYREM [Suspect]
     Indication: FIBROMYALGIA
     Dosage: 4.5 GM (2.25 GM, 2 IN 1 D), ORAL
     Route: 048
     Dates: start: 20100907
  4. ACETAMINOPHEN AND HYDROCODONE BITARTRATE [Suspect]
     Indication: BACK PAIN
     Dosage: (2 IN 1 D), ORAL
     Route: 048
     Dates: start: 20100907, end: 20100909
  5. PREGABALIN [Concomitant]
  6. MODAFINIL [Concomitant]
  7. CLONAZEPAM [Concomitant]
  8. SIMVASTATIN [Concomitant]
  9. RANOLAZINE [Concomitant]

REACTIONS (9)
  - CARDIOMEGALY [None]
  - CARDIOSPASM [None]
  - CHEST PAIN [None]
  - CRYING [None]
  - INSOMNIA [None]
  - INTERVERTEBRAL DISC PROTRUSION [None]
  - MOOD SWINGS [None]
  - NAUSEA [None]
  - PAIN [None]
